FAERS Safety Report 5507664-X (Version None)
Quarter: 2007Q4

REPORT INFORMATION
  Report Type: 
  Country: None (occurrence: None)
  Receive Date: 20071105
  Receipt Date: 20071105
  Transmission Date: 20080405
  Serious: Yes (Hospitalization, Disabling, Other)
  Sender: FDA-Public Use
  Company Number: None

PATIENT
  Age: 29 Year
  Sex: Female
  Weight: 58.9676 kg

DRUGS (1)
  1. ZELNORM [Suspect]

REACTIONS (7)
  - COLITIS ISCHAEMIC [None]
  - DIVERTICULUM [None]
  - GASTROINTESTINAL DISORDER [None]
  - IMPAIRED HEALING [None]
  - MALNUTRITION [None]
  - NECROSIS [None]
  - POST PROCEDURAL COMPLICATION [None]
